FAERS Safety Report 21394039 (Version 4)
Quarter: 2022Q4

REPORT INFORMATION
  Report Type: Report from Study
  Country: CN (occurrence: CN)
  Receive Date: 20220930
  Receipt Date: 20221122
  Transmission Date: 20230113
  Serious: Yes (Death, Life-Threatening, Hospitalization, Other)
  Sender: FDA-Public Use
  Company Number: CN-BRISTOL-MYERS SQUIBB COMPANY-2022-113312

PATIENT
  Age: 76 Year
  Sex: Male
  Weight: 66.00 kg

DRUGS (7)
  1. AZACITIDINE [Suspect]
     Active Substance: AZACITIDINE
     Indication: Myelodysplastic syndrome
     Route: 058
     Dates: start: 20220811, end: 20220817
  2. APG-115 [Suspect]
     Active Substance: APG-115
     Indication: Myelodysplastic syndrome
     Dosage: 100 MG, QD
     Route: 048
     Dates: start: 20220811, end: 20220817
  3. GRANULOCYTE COLONY-STIMULATING FACTOR NOS [Concomitant]
     Active Substance: GRANULOCYTE COLONY-STIMULATING FACTOR NOS
     Indication: Product used for unknown indication
     Dosage: 3 MG
     Route: 058
     Dates: start: 20220907, end: 20220907
  4. CASPOFUNGIN ACETATE [Concomitant]
     Active Substance: CASPOFUNGIN ACETATE
     Indication: Product used for unknown indication
     Dates: start: 20220716, end: 20220908
  5. PROMETHAZINE HYDROCHLORIDE [Concomitant]
     Active Substance: PROMETHAZINE HYDROCHLORIDE
     Indication: Product used for unknown indication
     Dosage: 12.5 MG
     Route: 030
     Dates: start: 20220907, end: 20220907
  6. MEROPENEM [Concomitant]
     Active Substance: MEROPENEM
     Indication: Product used for unknown indication
     Dates: start: 20220716, end: 20220908
  7. PLATELETS [Concomitant]
     Active Substance: HUMAN PLATELET, ALLOGENIC
     Indication: Product used for unknown indication
     Dosage: 1 UNIT, ONCE
     Dates: start: 20220907, end: 20220907

REACTIONS (4)
  - Pneumonia klebsiella [Fatal]
  - Atrial fibrillation [Unknown]
  - Myelosuppression [Unknown]
  - Sepsis [Fatal]

NARRATIVE: CASE EVENT DATE: 20220910
